FAERS Safety Report 8852890 (Version 3)
Quarter: 2012Q4

REPORT INFORMATION
  Report Type: 
  Country: US (occurrence: US)
  Receive Date: 20121022
  Receipt Date: 20121228
  Transmission Date: 20130627
  Serious: No
  Sender: FDA-Public Use
  Company Number: US-ASTRAZENECA-2012SE77571

PATIENT
  Age: 58 Year
  Sex: Male

DRUGS (9)
  1. SYMBICORT PMDI [Suspect]
     Route: 055
  2. ZESTRIL [Suspect]
     Route: 048
     Dates: start: 2002
  3. COUMADIN [Concomitant]
     Indication: ANTICOAGULANT THERAPY
     Dates: start: 2002
  4. ASPIRIN [Concomitant]
     Indication: ANTICOAGULANT THERAPY
     Dates: start: 2002
  5. LOSARTAN [Concomitant]
     Dates: start: 2002
  6. SPIRIVA [Concomitant]
     Dates: start: 2002
  7. COREG [Concomitant]
  8. ZYRTEC [Concomitant]
  9. SEVERAL OTHER MEDICATIONS [Concomitant]

REACTIONS (9)
  - Diabetes mellitus [Unknown]
  - Cardiac disorder [Unknown]
  - Weight decreased [Unknown]
  - Heart rate increased [Unknown]
  - Bronchitis [Unknown]
  - Weight decreased [Unknown]
  - Blood glucose increased [Recovering/Resolving]
  - Intentional drug misuse [Unknown]
  - Cough [Unknown]
